FAERS Safety Report 17718982 (Version 2)
Quarter: 2020Q3

REPORT INFORMATION
  Report Type: Spontaneous
  Country: US (occurrence: US)
  Receive Date: 20200428
  Receipt Date: 20200816
  Transmission Date: 20201102
  Serious: No
  Sender: FDA-Public Use
  Company Number: US-ASTRAZENECA-2020SE53654

PATIENT
  Sex: Female
  Weight: 72.6 kg

DRUGS (3)
  1. FLUTICASONE. [Concomitant]
     Active Substance: FLUTICASONE
     Route: 045
  2. CERTRIZINE [Concomitant]
  3. PULMICORT FLEXHALER [Suspect]
     Active Substance: BUDESONIDE
     Indication: ASTHMA
     Route: 055
     Dates: start: 20200320

REACTIONS (7)
  - Dysphonia [Unknown]
  - Oropharyngeal pain [Unknown]
  - Intentional device misuse [Unknown]
  - Device malfunction [Unknown]
  - Limb injury [Unknown]
  - Wrong technique in device usage process [Unknown]
  - Circumstance or information capable of leading to medication error [Unknown]
